FAERS Safety Report 6727841-X (Version None)
Quarter: 2010Q2

REPORT INFORMATION
  Report Type: 
  Country: None (occurrence: None)
  Receive Date: 20100517
  Receipt Date: 20081104
  Transmission Date: 20101027
  Serious: Yes (Other)
  Sender: FDA-Public Use
  Company Number: DE-B.I. PHARMACEUTICALS,INC./RIDGEFIELD-2008-DE-06112BY

PATIENT
  Sex: Female

DRUGS (1)
  1. TELMISARTAN AND HYDROCHLOROTHIAZIDE [Suspect]
     Route: 065

REACTIONS (2)
  - PHARYNGEAL OEDEMA [None]
  - SWOLLEN TONGUE [None]
